FAERS Safety Report 20491845 (Version 2)
Quarter: 2023Q2

REPORT INFORMATION
  Report Type: Report from Study
  Country: US (occurrence: US)
  Receive Date: 20220218
  Receipt Date: 20230404
  Transmission Date: 20230722
  Serious: Yes (Hospitalization, Other)
  Sender: FDA-Public Use
  Company Number: US-GILEAD-2022-0570451

PATIENT
  Age: 23 Year
  Sex: Female

DRUGS (4)
  1. AMBRISENTAN [Suspect]
     Active Substance: AMBRISENTAN
     Indication: Pulmonary arterial hypertension
     Dosage: 10 MG, QD
     Route: 065
     Dates: start: 20170519
  2. TYVASO [Suspect]
     Active Substance: TREPROSTINIL
     Indication: Pulmonary arterial hypertension
     Dosage: 0.6 MG
     Route: 065
     Dates: start: 20170404
  3. TYVASO [Suspect]
     Active Substance: TREPROSTINIL
     Dosage: 90 UG, QID
     Route: 065
     Dates: start: 202103
  4. TADALAFIL [Concomitant]
     Active Substance: TADALAFIL

REACTIONS (4)
  - Pneumonia [Unknown]
  - Dyspnoea [Unknown]
  - Flushing [Unknown]
  - Contusion [Unknown]

NARRATIVE: CASE EVENT DATE: 20211221
